FAERS Safety Report 11348986 (Version 1)
Quarter: 2015Q3

REPORT INFORMATION
  Report Type: Spontaneous
  Country: HU (occurrence: HU)
  Receive Date: 20150807
  Receipt Date: 20150807
  Transmission Date: 20151125
  Serious: Yes (Death)
  Sender: FDA-Public Use
  Company Number: HU-ACTELION-A-CH2015-122079

PATIENT
  Age: 34 Year
  Sex: Male
  Weight: 47 kg

DRUGS (4)
  1. TRACLEER [Suspect]
     Active Substance: BOSENTAN
     Indication: PULMONARY ARTERIAL HYPERTENSION
     Dosage: 1 TBS, BID
     Route: 048
     Dates: start: 2011, end: 20150801
  2. FUROSEMIDE. [Concomitant]
     Active Substance: FUROSEMIDE
     Route: 042
  3. DOBUTREX [Concomitant]
     Active Substance: DOBUTAMINE HYDROCHLORIDE
     Route: 042
  4. TREPROSTINIL [Concomitant]
     Active Substance: TREPROSTINIL
     Indication: PULMONARY ARTERIAL HYPERTENSION
     Route: 058

REACTIONS (2)
  - Right ventricular failure [Fatal]
  - Platelet count decreased [Fatal]
